FAERS Safety Report 14595145 (Version 1)
Quarter: 2018Q1

REPORT INFORMATION
  Report Type: Spontaneous
  Country: US (occurrence: US)
  Receive Date: 20180302
  Receipt Date: 20180302
  Transmission Date: 20180509
  Serious: No
  Sender: FDA-Public Use
  Company Number: US-AKORN PHARMACEUTICALS-2017AKN00262

PATIENT
  Age: 14 Year
  Sex: Male
  Weight: 66.67 kg

DRUGS (2)
  1. MYORISAN [Suspect]
     Active Substance: ISOTRETINOIN
     Indication: ACNE CYSTIC
     Dosage: 30 MG, 2X/DAY
     Route: 048
     Dates: start: 20170202, end: 201702
  2. UNSPECIFIED PROBIOTICS [Concomitant]

REACTIONS (3)
  - Headache [Recovered/Resolved]
  - Dry skin [Unknown]
  - Back pain [Unknown]

NARRATIVE: CASE EVENT DATE: 201702
